FAERS Safety Report 18482547 (Version 2)
Quarter: 2020Q4

REPORT INFORMATION
  Report Type: Other
  Country: US (occurrence: US)
  Receive Date: 20201110
  Receipt Date: 20201125
  Transmission Date: 20210114
  Serious: Yes (Death)
  Sender: FDA-Public Use
  Company Number: US-ROCHE-2709794

PATIENT
  Age: 67 Year
  Sex: Male

DRUGS (1)
  1. OCREVUS [Suspect]
     Active Substance: OCRELIZUMAB
     Indication: RELAPSING MULTIPLE SCLEROSIS
     Dosage: DATE OF TREATMENT: 09/APR/2018?DATE OF TREATMENT: 22/APR/2019, 19/OCT/2019, 18/DEC/2019, 29/JUN/2020
     Route: 042
     Dates: end: 20200629

REACTIONS (1)
  - Death [Fatal]

NARRATIVE: CASE EVENT DATE: 20201010
